FAERS Safety Report 20299229 (Version 1)
Quarter: 2022Q1

REPORT INFORMATION
  Report Type: Spontaneous
  Country: US (occurrence: US)
  Receive Date: 20220105
  Receipt Date: 20220105
  Transmission Date: 20220423
  Serious: No
  Sender: FDA-Public Use
  Company Number: US-GW PHARMA-202112USGW06449

PATIENT

DRUGS (2)
  1. EPIDIOLEX [Suspect]
     Active Substance: CANNABIDIOL
     Indication: Lennox-Gastaut syndrome
     Dosage: 100 MILLIGRAM, BID (100 MG IN MORNING AND 100 MG IN EVENING)
     Route: 048
     Dates: start: 20191004
  2. CALCIUM CARBONATE [Concomitant]
     Active Substance: CALCIUM CARBONATE
     Indication: Product used for unknown indication
     Dosage: UNK
     Route: 065

REACTIONS (4)
  - Suspected COVID-19 [Not Recovered/Not Resolved]
  - Seizure [Not Recovered/Not Resolved]
  - Pyrexia [Not Recovered/Not Resolved]
  - Product contamination physical [Unknown]

NARRATIVE: CASE EVENT DATE: 20211201
